FAERS Safety Report 21560901 (Version 4)
Quarter: 2022Q4

REPORT INFORMATION
  Report Type: Spontaneous
  Country: IT (occurrence: IT)
  Receive Date: 20221107
  Receipt Date: 20221229
  Transmission Date: 20230113
  Serious: Yes (Other)
  Sender: FDA-Public Use
  Company Number: None

PATIENT
  Age: 65 Year
  Sex: Female

DRUGS (4)
  1. CITALOPRAM [Suspect]
     Active Substance: CITALOPRAM HYDROBROMIDE
     Indication: Depression
     Dosage: UNK
     Route: 065
  2. FLURAZEPAM [Suspect]
     Active Substance: FLURAZEPAM HYDROCHLORIDE
     Indication: Insomnia
     Dosage: INTAKE-SELF-HARM OF 30CP OF 1MG(WHOLE PACK)
     Route: 048
     Dates: start: 20220929, end: 20220929
  3. FLURAZEPAM HYDROCHLORIDE [Suspect]
     Active Substance: FLURAZEPAM HYDROCHLORIDE
     Indication: Insomnia
     Dosage: TAKING 30 X30MG TABLETS,1 PACK, FOR SELF-HARM
     Route: 048
     Dates: start: 20220929, end: 20220929
  4. FLURAZEPAM HYDROCHLORIDE [Suspect]
     Active Substance: FLURAZEPAM HYDROCHLORIDE
     Dosage: TAKING 30 X30MG TABLETS,1 PACK, FOR SELF-HARM
     Route: 048
     Dates: start: 20220921, end: 20220921

REACTIONS (5)
  - Intentional self-injury [Recovering/Resolving]
  - Long QT syndrome [Recovering/Resolving]
  - Drug abuse [Unknown]
  - Electrocardiogram QT prolonged [Recovering/Resolving]
  - Sopor [Recovering/Resolving]

NARRATIVE: CASE EVENT DATE: 20220929
